FAERS Safety Report 24258931 (Version 3)
Quarter: 2024Q4

REPORT INFORMATION
  Report Type: Spontaneous
  Country: US (occurrence: US)
  Receive Date: 20240828
  Receipt Date: 20241223
  Transmission Date: 20250115
  Serious: Yes (Death)
  Sender: PFIZER
  Company Number: US-PFIZER INC-PV202300039156

PATIENT
  Age: 79 Year
  Sex: Male

DRUGS (7)
  1. BRAFTOVI [Suspect]
     Active Substance: ENCORAFENIB
     Indication: Colon cancer metastatic
     Dosage: 150 MG, DAILY (2 TABLETS DAILY FOR 2 WEEKS)
     Dates: start: 20230113
  2. BRAFTOVI [Suspect]
     Active Substance: ENCORAFENIB
     Indication: BRAF V600E mutation positive
     Dosage: 300 MG, DAILY (4 TABLETS DAILY)
     Route: 048
  3. BRAFTOVI [Suspect]
     Active Substance: ENCORAFENIB
     Dosage: 75 MG
  4. BRAFTOVI [Suspect]
     Active Substance: ENCORAFENIB
     Dosage: 75 MG, DAILY (2 CAPSULES BY MOUTH DAILY)
     Route: 048
  5. BRAFTOVI [Suspect]
     Active Substance: ENCORAFENIB
     Dosage: 1X/DAY
     Route: 048
  6. CETUXIMAB [Concomitant]
     Active Substance: CETUXIMAB
     Indication: Colon cancer metastatic
     Dosage: UNK (500 MG/M2 Q2WEEKS)
  7. CETUXIMAB [Concomitant]
     Active Substance: CETUXIMAB
     Indication: BRAF V600E mutation positive

REACTIONS (2)
  - Neoplasm progression [Fatal]
  - Product dose omission issue [Unknown]
